FAERS Safety Report 10602469 (Version 1)
Quarter: 2014Q4

REPORT INFORMATION
  Report Type: Spontaneous
  Country: FR (occurrence: FR)
  Receive Date: 20141124
  Receipt Date: 20141124
  Transmission Date: 20150529
  Serious: Yes (Hospitalization)
  Sender: FDA-Public Use
  Company Number: FR-ASTRAZENECA-2014SE87771

PATIENT
  Age: 41 Year
  Sex: Female

DRUGS (3)
  1. BETADINE [Suspect]
     Active Substance: POVIDONE-IODINE
     Dosage: ONCE/SINGLE ADMINISTRATION
     Route: 003
     Dates: start: 20140926, end: 20140926
  2. DIPRIVAN [Suspect]
     Active Substance: PROPOFOL
     Dosage: ONCE/SINGLE ADMINISTRATION
     Route: 042
     Dates: start: 20140926, end: 20140926
  3. SUFENTANIL [Suspect]
     Active Substance: SUFENTANIL
     Dosage: ONCE/SINGLE ADMINISTRATION
     Route: 042
     Dates: start: 20140926, end: 20140926

REACTIONS (2)
  - Hypersensitivity [Recovered/Resolved]
  - Dermatitis bullous [Recovered/Resolved]

NARRATIVE: CASE EVENT DATE: 20140926
